FAERS Safety Report 5748290-7 (Version None)
Quarter: 2008Q2

REPORT INFORMATION
  Report Type: 
  Country: None (occurrence: None)
  Receive Date: 20080520
  Receipt Date: 20080506
  Transmission Date: 20081010
  Serious: Yes (Death, Hospitalization)
  Sender: FDA-Public Use
  Company Number: A-NJ2007-16898

PATIENT
  Age: 42 Year
  Sex: Female

DRUGS (12)
  1. TRACLEER [Suspect]
     Indication: PULMONARY ARTERIAL HYPERTENSION
     Dosage: ORAL;ORAL
     Route: 048
     Dates: start: 20070401, end: 20070706
  2. TRACLEER [Suspect]
     Indication: PULMONARY ARTERIAL HYPERTENSION
     Dosage: ORAL;ORAL
     Route: 048
     Dates: start: 20070101
  3. VENTAVIS [Suspect]
     Indication: PULMONARY ARTERIAL HYPERTENSION
     Dosage: 5 UG, 6-9 X DAY, RESPIRATORY
     Route: 055
     Dates: start: 20070629
  4. CALCIUM CARBONATE (CALCIUM CARBONATE) [Concomitant]
  5. COLACE (DOCUSATE SODIUM) [Concomitant]
  6. NIACIN [Concomitant]
  7. FUROSEMIDE [Concomitant]
  8. LISINOPRIL [Concomitant]
  9. MAGNESIUM OXIDE (MAGNESIUM OXIDE) [Concomitant]
  10. PERCOCET [Concomitant]
  11. VITAMIN D(ERGOCALIFEROL) [Concomitant]
  12. LEVOTHYROXINE SODIUM [Concomitant]

REACTIONS (11)
  - ANAEMIA POSTOPERATIVE [None]
  - ARTHRALGIA [None]
  - CHEST DISCOMFORT [None]
  - INTESTINAL FUNCTIONAL DISORDER [None]
  - MENOPAUSE [None]
  - MENORRHAGIA [None]
  - PAIN [None]
  - PROCEDURAL HYPOTENSION [None]
  - SUDDEN DEATH [None]
  - THROMBOSIS [None]
  - UMBILICAL HERNIA [None]
